FAERS Safety Report 7399787-8 (Version None)
Quarter: 2011Q2

REPORT INFORMATION
  Report Type: 
  Country: None (occurrence: None)
  Receive Date: 20110407
  Receipt Date: 20110323
  Transmission Date: 20111010
  Serious: Yes (Hospitalization, Other)
  Sender: FDA-Public Use
  Company Number: JP-JNJFOC-20100200132

PATIENT
  Sex: Male
  Weight: 59 kg

DRUGS (36)
  1. REMICADE [Suspect]
     Indication: RHEUMATOID ARTHRITIS
     Route: 042
  2. REMICADE [Suspect]
     Route: 042
  3. REMICADE [Suspect]
     Route: 042
  4. REMICADE [Suspect]
     Route: 042
  5. RHEUMATREX [Concomitant]
     Indication: RHEUMATOID ARTHRITIS
     Route: 048
  6. REMICADE [Suspect]
     Route: 042
  7. REMICADE [Suspect]
     Route: 042
  8. REMICADE [Suspect]
     Route: 042
  9. REMICADE [Suspect]
     Dosage: 5 INFUSIONS ON UNSPECIFIED DATES
     Route: 042
  10. REMICADE [Suspect]
     Route: 042
  11. PREDNISOLONE [Concomitant]
     Route: 048
  12. ACETAMINOPHEN [Concomitant]
     Indication: PROPHYLAXIS
  13. UNKNOWN ADRENAL HORMONE PREPARATIONS [Concomitant]
     Indication: RHEUMATOID ARTHRITIS
  14. REMICADE [Suspect]
     Route: 042
  15. REMICADE [Suspect]
     Route: 042
  16. REMICADE [Suspect]
     Route: 042
  17. REMICADE [Suspect]
     Route: 042
  18. PREDNISOLONE [Concomitant]
     Route: 048
  19. REMICADE [Suspect]
     Route: 042
  20. PREDNISOLONE [Concomitant]
     Indication: RHEUMATOID ARTHRITIS
     Route: 048
  21. PREDNISOLONE [Concomitant]
     Route: 048
  22. GASTER D [Concomitant]
     Route: 048
  23. REMICADE [Suspect]
     Route: 042
  24. REMICADE [Suspect]
     Route: 042
  25. REMICADE [Suspect]
     Route: 042
  26. PREDNISOLONE [Concomitant]
     Route: 048
  27. PREDNISOLONE [Concomitant]
     Route: 048
  28. REMICADE [Suspect]
     Route: 042
  29. REMICADE [Suspect]
     Route: 042
  30. PREDNISOLONE [Concomitant]
     Route: 048
  31. PREDNISOLONE [Concomitant]
     Route: 048
  32. ANTIHISTAMINES [Concomitant]
     Indication: PROPHYLAXIS
  33. RHEUMATREX [Concomitant]
     Route: 048
  34. RIMATIL [Concomitant]
     Indication: RHEUMATOID ARTHRITIS
     Route: 048
  35. REMICADE [Suspect]
     Route: 042
  36. REMICADE [Suspect]
     Route: 042

REACTIONS (7)
  - NAUSEA [None]
  - FLUSHING [None]
  - INFUSION RELATED REACTION [None]
  - INTERSTITIAL LUNG DISEASE [None]
  - SCLERODERMA [None]
  - DNA ANTIBODY POSITIVE [None]
  - BLOOD PRESSURE DECREASED [None]
